FAERS Safety Report 5531928-7 (Version None)
Quarter: 2007Q4

REPORT INFORMATION
  Report Type: 
  Country: None (occurrence: None)
  Receive Date: 20071128
  Receipt Date: 20071128
  Transmission Date: 20080405
  Serious: Yes (Life-Threatening, Other)
  Sender: FDA-Public Use
  Company Number: None

PATIENT
  Sex: Male
  Weight: 79.3795 kg

DRUGS (1)
  1. NITROFURANTOIN MACROCRYSTALLINE [Suspect]
     Indication: URINARY TRACT INFECTION
     Dosage: 100MG  2 CAPUSALS  URETHRAL
     Route: 066
     Dates: start: 20071106, end: 20071122

REACTIONS (12)
  - ASTHENIA [None]
  - CHILLS [None]
  - CONFUSIONAL STATE [None]
  - CONSTIPATION [None]
  - DRUG DOSE OMISSION [None]
  - DYSSTASIA [None]
  - HEADACHE [None]
  - MALAISE [None]
  - PYREXIA [None]
  - RENAL PAIN [None]
  - TUMOUR HAEMORRHAGE [None]
  - VOMITING [None]
